FAERS Safety Report 4565726-8 (Version None)
Quarter: 2005Q1

REPORT INFORMATION
  Report Type: 
  Country: None (occurrence: None)
  Receive Date: 20050131
  Receipt Date: 20050126
  Transmission Date: 20050727
  Serious: Yes (Death)
  Sender: FDA-Public Use
  Company Number: PHBS2005US01433

PATIENT
  Age: 44 Year
  Sex: Female

DRUGS (1)
  1. CYCLOSPORINE [Suspect]
     Indication: HEART TRANSPLANT
     Route: 065

REACTIONS (1)
  - SCEDOSPORIUM INFECTION [None]
